FAERS Safety Report 10151144 (Version 1)
Quarter: 2014Q2

REPORT INFORMATION
  Report Type: Spontaneous
  Country: US (occurrence: US)
  Receive Date: 20140502
  Receipt Date: 20140502
  Transmission Date: 20141212
  Serious: Yes (Other)
  Sender: FDA-Public Use
  Company Number: US-BAXTER-2014BAX021199

PATIENT
  Age: 49 Year
  Sex: Male

DRUGS (1)
  1. VANCOMYCIN INJECTION, USP [Suspect]
     Indication: MENINGITIS BACTERIAL
     Route: 042

REACTIONS (2)
  - Mental status changes [Not Recovered/Not Resolved]
  - Renal failure acute [Unknown]
